FAERS Safety Report 9789812 (Version 1)
Quarter: 2013Q4

REPORT INFORMATION
  Report Type: Spontaneous
  Country: US (occurrence: None)
  Receive Date: 20131230
  Receipt Date: 20131230
  Transmission Date: 20140711
  Serious: Yes (Death)
  Sender: FDA-Public Use
  Company Number: None

PATIENT
  Age: 74 Year
  Sex: Male
  Weight: 103.42 kg

DRUGS (2)
  1. ARIXTRA [Suspect]
     Indication: POSTOPERATIVE CARE
     Dosage: 2.5MG, ONCE DAILY, GIVEN INTO/UNDER THE SKIN
     Dates: start: 20131125, end: 20131205
  2. ARIXTRA [Suspect]
     Indication: HIP ARTHROPLASTY
     Dosage: 2.5MG, ONCE DAILY, GIVEN INTO/UNDER THE SKIN
     Dates: start: 20131125, end: 20131205

REACTIONS (1)
  - Haemorrhage intracranial [None]
